FAERS Safety Report 8321927 (Version 2)
Quarter: 2013Q2

REPORT INFORMATION
  Report Type: Report from Study
  Country: BR (occurrence: BR)
  Receive Date: 20120104
  Receipt Date: 20130528
  Transmission Date: 20140414
  Serious: Yes (Hospitalization, Other)
  Sender: FDA-Public Use
  Company Number: PHHO2011BR01655

PATIENT
  Age: 26 Year
  Sex: Male

DRUGS (3)
  1. AMN107 [Suspect]
     Indication: GASTROINTESTINAL STROMAL TUMOUR
     Dosage: 800 MG, BID
     Dates: start: 20100226, end: 20110315
  2. AMN107 [Suspect]
     Dosage: NO TREATMENT RECEIVED
     Dates: start: 20110316, end: 20110404
  3. AMN107 [Suspect]
     Dosage: 800 MG, BID
     Dates: start: 20110404

REACTIONS (3)
  - Papillary thyroid cancer [Recovered/Resolved]
  - Nodule [Recovered/Resolved]
  - Second primary malignancy [Recovered/Resolved]
